FAERS Safety Report 4377917-X (Version None)
Quarter: 2004Q2

REPORT INFORMATION
  Report Type: 
  Country: None (occurrence: None)
  Receive Date: 20040615
  Receipt Date: 20040615
  Transmission Date: 20050107
  Serious: Yes (Other)
  Sender: FDA-Public Use
  Company Number: None

PATIENT
  Age: 23 Year
  Sex: Female
  Weight: 79.3795 kg

DRUGS (1)
  1. SEROQUEL [Suspect]
     Indication: INSOMNIA
     Dosage: 25-100MG 1X AT NIGHT ORAL
     Route: 048
     Dates: start: 20040609, end: 20040609

REACTIONS (4)
  - INSOMNIA [None]
  - MOVEMENT DISORDER [None]
  - ORTHOSTATIC HYPOTENSION [None]
  - TARDIVE DYSKINESIA [None]
